FAERS Safety Report 5394403-9 (Version None)
Quarter: 2007Q3

REPORT INFORMATION
  Report Type: 
  Country: None (occurrence: None)
  Receive Date: 20070723
  Receipt Date: 20070710
  Transmission Date: 20080115
  Serious: Yes (Death)
  Sender: FDA-Public Use
  Company Number: DE-PURDUE-DEU_2007_0003315

PATIENT
  Age: 58 Year
  Sex: Male

DRUGS (2)
  1. TARGIN  RETARDTABLETTEN [Suspect]
     Indication: CONSTIPATION
     Dosage: 20 MG, TID
     Route: 048
     Dates: start: 20070503, end: 20070501
  2. OXYGESIC 10 MG [Suspect]
     Indication: DRUG USE FOR UNKNOWN INDICATION
     Dosage: 10 MG, BID
     Route: 048
     Dates: start: 20070406, end: 20070502

REACTIONS (6)
  - ARRHYTHMIA [None]
  - CHILLS [None]
  - DRUG WITHDRAWAL SYNDROME [None]
  - INCORRECT DOSE ADMINISTERED [None]
  - NAUSEA [None]
  - VOMITING [None]
